FAERS Safety Report 24690818 (Version 1)
Quarter: 2024Q4

REPORT INFORMATION
  Report Type: Spontaneous
  Country: US (occurrence: US)
  Receive Date: 20241203
  Receipt Date: 20241203
  Transmission Date: 20250115
  Serious: No
  Sender: MERCK
  Company Number: US-009507513-2411USA001623

PATIENT
  Age: 3 Year
  Sex: Male

DRUGS (6)
  1. TEMODAR [Suspect]
     Active Substance: TEMOZOLOMIDE
     Indication: Hepatoblastoma
     Dosage: UNK
     Route: 048
     Dates: start: 2017
  2. IFOSFAMIDE [Concomitant]
     Active Substance: IFOSFAMIDE
     Indication: Hepatoblastoma
     Dosage: UNK
     Dates: start: 2017
  3. CARBOPLATIN [Concomitant]
     Active Substance: CARBOPLATIN
     Indication: Hepatoblastoma
     Dosage: UNK
     Dates: start: 2017
  4. ETOPOSIDE [Concomitant]
     Active Substance: ETOPOSIDE
     Indication: Hepatoblastoma
     Dosage: UNK
     Dates: start: 2017
  5. VINCRISTINE [Concomitant]
     Active Substance: VINCRISTINE
     Indication: Hepatoblastoma
     Dosage: UNK
     Dates: start: 2017
  6. IRINOTECAN [Concomitant]
     Active Substance: IRINOTECAN
     Indication: Hepatoblastoma
     Dosage: UNK
     Dates: start: 2017

REACTIONS (1)
  - Product administered to patient of inappropriate age [Unknown]

NARRATIVE: CASE EVENT DATE: 20170101
